FAERS Safety Report 8141367-0 (Version None)
Quarter: 2012Q1

REPORT INFORMATION
  Report Type: 
  Country: None (occurrence: None)
  Receive Date: 20120216
  Receipt Date: 20120208
  Transmission Date: 20120608
  Serious: Yes (Other)
  Sender: FDA-Public Use
  Company Number: PHHY2011CA099445

PATIENT
  Sex: Male
  Weight: 63.5 kg

DRUGS (6)
  1. GABAPENTIN [Concomitant]
     Indication: MUSCLE CONTRACTIONS INVOLUNTARY
     Dosage: 100 MG, QHS
     Route: 048
     Dates: start: 19990101
  2. SALAGEN [Suspect]
     Indication: DRY MOUTH
     Dosage: 5 MG, QID
     Route: 048
     Dates: start: 20110921, end: 20111021
  3. GABAPENTIN [Concomitant]
     Indication: RESTLESS LEGS SYNDROME
  4. FLOMAX [Concomitant]
     Indication: BENIGN PROSTATIC HYPERPLASIA
     Dosage: 0.4 MG, DAILY
     Dates: start: 20100101
  5. LITHIUM CARBONATE [Concomitant]
     Indication: DEPRESSION
     Dosage: 300 MG IN MORNING AND 150 MG IN EVENING
     Route: 048
     Dates: start: 19850101
  6. LITHIUM CARBONATE [Concomitant]
     Indication: BIPOLAR DISORDER

REACTIONS (13)
  - PUTAMEN HAEMORRHAGE [None]
  - SENSORY LOSS [None]
  - TRANSIENT ISCHAEMIC ATTACK [None]
  - HYPERHIDROSIS [None]
  - MICTURITION URGENCY [None]
  - SPEECH DISORDER [None]
  - SENSATION OF HEAVINESS [None]
  - VASOGENIC CEREBRAL OEDEMA [None]
  - CAROTID ARTERIOSCLEROSIS [None]
  - DRUG INEFFECTIVE [None]
  - ANGIOPATHY [None]
  - FATIGUE [None]
  - HEMIPARESIS [None]
